FAERS Safety Report 7213152 (Version 7)
Quarter: 2012Q4

REPORT INFORMATION
  Report Type: 
  Country: US (occurrence: US)
  Receive Date: 20091211
  Receipt Date: 20120905
  Transmission Date: 20130627
  Serious: Yes (Death, Hospitalization, Other)
  Sender: FDA-Public Use
  Company Number: PHHO2009US15141

PATIENT
  Age: 66 Year
  Sex: Female
  Weight: 123.9 kg

DRUGS (17)
  1. CYCLOSPORIN [Suspect]
     Indication: RENAL TRANSPLANT
     Dosage: 100 mg, 225 mg 1xday
     Route: 048
     Dates: start: 20090616
  2. PREDNISONE [Suspect]
     Indication: RENAL TRANSPLANT
     Dosage: 5 mg, QD
     Route: 048
     Dates: start: 20080721
  3. CELLCEPT [Suspect]
     Indication: RENAL TRANSPLANT
     Dosage: 750 mg, BID
     Route: 048
     Dates: start: 20080711, end: 20090914
  4. CELLCEPT [Suspect]
     Dosage: 500 mg, BID
     Route: 048
     Dates: start: 20090915, end: 20091111
  5. CELLCEPT [Suspect]
     Dosage: 750 mg, BID
     Route: 048
     Dates: start: 20091112, end: 20091118
  6. ADVAIR [Concomitant]
  7. FLUNISOLIDE [Concomitant]
  8. HEPARIN [Concomitant]
  9. HYDRALAZINE [Concomitant]
  10. ISOSORBIDE [Concomitant]
  11. LEVOTHYROXINE [Concomitant]
  12. METOPROLOL [Concomitant]
  13. OMEPRAZOLE [Concomitant]
  14. SODIUM BICARBONATE [Concomitant]
  15. SPIRIVA [Concomitant]
  16. VALCYTE [Concomitant]
  17. MOXIFLOXACIN [Concomitant]
     Dosage: UNK
     Dates: start: 20091113

REACTIONS (57)
  - Sepsis [Fatal]
  - Leukocytosis [Fatal]
  - Pyrexia [Fatal]
  - Hypotension [Fatal]
  - Agitation [Fatal]
  - Bacterial infection [Fatal]
  - Staphylococcal infection [Fatal]
  - Confusional state [Fatal]
  - Mental status changes [Fatal]
  - Depressed level of consciousness [Fatal]
  - Atrial flutter [Fatal]
  - Post transplant lymphoproliferative disorder [Unknown]
  - Epstein-Barr virus infection [Unknown]
  - Diabetic ketoacidosis [Recovered/Resolved]
  - Hepatitis [Unknown]
  - Liver function test abnormal [Fatal]
  - Arrhythmia supraventricular [Not Recovered/Not Resolved]
  - Tachyarrhythmia [Not Recovered/Not Resolved]
  - Right ventricular failure [Not Recovered/Not Resolved]
  - Right ventricular hypertrophy [Not Recovered/Not Resolved]
  - Right ventricular systolic pressure decreased [Not Recovered/Not Resolved]
  - Fluid overload [Unknown]
  - Tricuspid valve incompetence [Not Recovered/Not Resolved]
  - Right atrial pressure increased [Not Recovered/Not Resolved]
  - Ventricular tachycardia [Not Recovered/Not Resolved]
  - Ventricular fibrillation [Not Recovered/Not Resolved]
  - Ascites [Not Recovered/Not Resolved]
  - Left ventricular dysfunction [Not Recovered/Not Resolved]
  - Left ventricular hypertrophy [Not Recovered/Not Resolved]
  - Pulmonary hypertension [Not Recovered/Not Resolved]
  - Electrocardiogram T wave abnormal [Not Recovered/Not Resolved]
  - Pleural effusion [Not Recovered/Not Resolved]
  - Left atrial dilatation [Not Recovered/Not Resolved]
  - Troponin increased [Not Recovered/Not Resolved]
  - Electrocardiogram QT prolonged [Not Recovered/Not Resolved]
  - Dilatation ventricular [Not Recovered/Not Resolved]
  - Cardiomegaly [Not Recovered/Not Resolved]
  - Ventricular hypertrophy [Not Recovered/Not Resolved]
  - Right atrial dilatation [Not Recovered/Not Resolved]
  - Supraventricular extrasystoles [Not Recovered/Not Resolved]
  - Aortic calcification [Not Recovered/Not Resolved]
  - Pulmonary valve incompetence [Not Recovered/Not Resolved]
  - Inferior vena cava dilatation [Not Recovered/Not Resolved]
  - Atrioventricular block [Not Recovered/Not Resolved]
  - Generalised oedema [Not Recovered/Not Resolved]
  - Atelectasis [Not Recovered/Not Resolved]
  - Hepatic congestion [Not Recovered/Not Resolved]
  - Cholelithiasis [Unknown]
  - Gallbladder disorder [Unknown]
  - Renal failure acute [Fatal]
  - Urine output decreased [Not Recovered/Not Resolved]
  - Blood creatinine increased [Not Recovered/Not Resolved]
  - Vasodilatation [Not Recovered/Not Resolved]
  - Complications of transplanted kidney [Not Recovered/Not Resolved]
  - Oliguria [Not Recovered/Not Resolved]
  - Anuria [Not Recovered/Not Resolved]
  - Inflammation [Unknown]
